FAERS Safety Report 9292843 (Version 1)
Quarter: 2013Q2

REPORT INFORMATION
  Report Type: Spontaneous
  Country: US (occurrence: None)
  Receive Date: 20130513
  Receipt Date: 20130513
  Transmission Date: 20140414
  Serious: Yes (Hospitalization, Other)
  Sender: FDA-Public Use
  Company Number: ACO_35849_2013

PATIENT
  Sex: Male

DRUGS (10)
  1. AMPYRA (DALFAMPRIDINE) TABLET, 10MG [Suspect]
     Indication: GAIT DISTURBANCE
     Route: 048
  2. AMPYRA (DALFAMPRIDINE) TABLET, 10MG [Suspect]
     Indication: MULTIPLE SCLEROSIS
     Route: 048
  3. CALCIUM (CALCIUM) [Concomitant]
  4. VITAMIN OF (ERGOCALCIFEROL) [Concomitant]
  5. ADVIL [Concomitant]
  6. REBIF (INTERFERON BETA-1A) [Concomitant]
  7. BACLOFEN (BACLFEN) [Concomitant]
  8. PROZAC [Concomitant]
  9. PROVIGIL (MODAFINIL) [Concomitant]
  10. NASONEX [Concomitant]

REACTIONS (2)
  - Bladder catheterisation [None]
  - Urinary tract infection [None]
